FAERS Safety Report 11684708 (Version 1)
Quarter: 2015Q4

REPORT INFORMATION
  Report Type: Spontaneous
  Country: US (occurrence: US)
  Receive Date: 20151029
  Receipt Date: 20151029
  Transmission Date: 20160304
  Serious: Yes (Hospitalization, Other)
  Sender: FDA-Public Use
  Company Number: US-GLAXOSMITHKLINE-US2015154638

PATIENT
  Age: 86 Year
  Sex: Female

DRUGS (2)
  1. ASPIRIN. [Concomitant]
     Active Substance: ASPIRIN
  2. ADVAIR DISKUS [Suspect]
     Active Substance: FLUTICASONE PROPIONATE\SALMETEROL XINAFOATE
     Indication: ASTHMA
     Dosage: 100/50 1 PUFF, BID
     Dates: start: 2005

REACTIONS (2)
  - Renal neoplasm [Not Recovered/Not Resolved]
  - Tracheostomy [Not Recovered/Not Resolved]

NARRATIVE: CASE EVENT DATE: 201507
